FAERS Safety Report 6763291-8 (Version None)
Quarter: 2010Q2

REPORT INFORMATION
  Report Type: 
  Country: None (occurrence: None)
  Receive Date: 20100608
  Receipt Date: 20100608
  Transmission Date: 20101027
  Serious: Yes (Hospitalization)
  Sender: FDA-Public Use
  Company Number: None

PATIENT
  Sex: Male
  Weight: 66.2 kg

DRUGS (3)
  1. CARBOPLATIN [Suspect]
     Dosage: 461 MG
  2. ERBITUX [Suspect]
  3. TAXOL [Suspect]
     Dosage: 166 MG

REACTIONS (10)
  - DEHYDRATION [None]
  - DYSPHAGIA [None]
  - FATIGUE [None]
  - HYPOALBUMINAEMIA [None]
  - HYPOCALCAEMIA [None]
  - HYPONATRAEMIA [None]
  - LEUKOPENIA [None]
  - LYMPHOPENIA [None]
  - NAUSEA [None]
  - VOMITING [None]
